FAERS Safety Report 4653160-1 (Version None)
Quarter: 2005Q2

REPORT INFORMATION
  Report Type: 
  Country: None (occurrence: None)
  Receive Date: 20050503
  Receipt Date: 20050425
  Transmission Date: 20051028
  Serious: Yes (Other)
  Sender: FDA-Public Use
  Company Number: 2005050383

PATIENT
  Age: 71 Year
  Sex: Male
  Weight: 72.5755 kg

DRUGS (5)
  1. NORPACE CR [Suspect]
     Indication: ATRIAL FIBRILLATION
     Dosage: 750 MG (150 MG, 5XDAY INTERVAL: EVERY DAY)
     Dates: start: 19970101
  2. PROPRANOLOL HYDROCHLORIDE [Concomitant]
  3. DIGOXIN [Concomitant]
  4. GEMFIBROZIL [Concomitant]
  5. ASPIRIN [Concomitant]

REACTIONS (6)
  - ASTHENIA [None]
  - ATRIAL FIBRILLATION [None]
  - CONDITION AGGRAVATED [None]
  - DRUG LEVEL DECREASED [None]
  - FLUSHING [None]
  - PHARMACEUTICAL PRODUCT COMPLAINT [None]
